FAERS Safety Report 8510313 (Version 2)
Quarter: 2012Q4

REPORT INFORMATION
  Report Type: Spontaneous
  Country: US (occurrence: None)
  Receive Date: 20120309
  Receipt Date: 20120907
  Transmission Date: 20130627
  Serious: Yes (Hospitalization)
  Sender: FDA-Public Use
  Company Number: TH-2012-00068

PATIENT
  Age: 58 Year
  Sex: Male
  Weight: 78 kg

DRUGS (2)
  1. EGRIFTA [Suspect]
     Indication: LIPOHYPERTROPHY
     Dates: start: 201108
  2. METFORMIN HYDROCHLORIDE [Concomitant]

REACTIONS (8)
  - Diarrhoea [None]
  - Chills [None]
  - Myalgia [None]
  - Nausea [None]
  - Paraesthesia [None]
  - Vomiting [None]
  - Off label use [None]
  - Pancreatitis [None]
